FAERS Safety Report 8830841 (Version 2)
Quarter: 2012Q4

REPORT INFORMATION
  Report Type: 
  Country: US (occurrence: US)
  Receive Date: 20121008
  Receipt Date: 20121112
  Transmission Date: 20130627
  Serious: Yes (Hospitalization)
  Sender: FDA-Public Use
  Company Number: US-PFIZER INC-2012243823

PATIENT
  Age: 62 Year
  Sex: Female

DRUGS (2)
  1. INLYTA [Suspect]
     Indication: RENAL CELL CARCINOMA
     Dosage: 5 mg, 2x/day
     Route: 048
     Dates: start: 20120906, end: 20120927
  2. INSULIN [Suspect]
     Dosage: UNK

REACTIONS (2)
  - Hypoglycaemia [Unknown]
  - Hypokalaemia [Unknown]
